FAERS Safety Report 22918120 (Version 3)
Quarter: 2023Q4

REPORT INFORMATION
  Report Type: Spontaneous
  Country: FR (occurrence: FR)
  Receive Date: 20230907
  Receipt Date: 20231121
  Transmission Date: 20240110
  Serious: Yes (Hospitalization, Other)
  Sender: FDA-Public Use
  Company Number: FR-SUN PHARMACEUTICAL INDUSTRIES LTD-2023R1-392804

PATIENT
  Age: 38 Year
  Sex: Female

DRUGS (57)
  1. OLANZAPINE [Suspect]
     Active Substance: OLANZAPINE
     Indication: Product used for unknown indication
     Dosage: 10 MILLIGRAM, QD
     Route: 065
  2. OLANZAPINE [Suspect]
     Active Substance: OLANZAPINE
     Dosage: 20 MILLIGRAM, QD
     Route: 065
  3. ZOPICLONE [Suspect]
     Active Substance: ZOPICLONE
     Indication: Sedation
     Dosage: 7.5 MILLIGRAM, QD
     Route: 065
     Dates: start: 20220701, end: 20220701
  4. ZOPICLONE [Suspect]
     Active Substance: ZOPICLONE
     Indication: Major depression
     Dosage: 7.5 MILLIGRAM, QD
     Route: 065
     Dates: start: 20220705, end: 20220706
  5. ZOPICLONE [Suspect]
     Active Substance: ZOPICLONE
     Dosage: 7.5 MILLIGRAM, QD
     Route: 065
     Dates: start: 20220610, end: 20220613
  6. ZOPICLONE [Suspect]
     Active Substance: ZOPICLONE
     Dosage: 7.5 MILLIGRAM, QD
     Route: 065
     Dates: start: 20220422, end: 20220423
  7. ZOPICLONE [Suspect]
     Active Substance: ZOPICLONE
     Dosage: 7.5 MILLIGRAM, QD
     Route: 065
     Dates: start: 20220608, end: 20220608
  8. ZOPICLONE [Suspect]
     Active Substance: ZOPICLONE
     Dosage: 7.5 MILLIGRAM, QD
     Route: 065
     Dates: start: 20220528, end: 20220528
  9. ZOPICLONE [Suspect]
     Active Substance: ZOPICLONE
     Dosage: 7.5 MILLIGRAM, QD
     Route: 065
     Dates: start: 20220605, end: 20220605
  10. ZOPICLONE [Suspect]
     Active Substance: ZOPICLONE
     Dosage: 7.5 MILLIGRAM, QD
     Route: 065
     Dates: start: 20220727, end: 20220727
  11. ZOPICLONE [Suspect]
     Active Substance: ZOPICLONE
     Dosage: 7.5 MILLIGRAM, QD
     Route: 065
     Dates: start: 20220622, end: 20220626
  12. ZOPICLONE [Suspect]
     Active Substance: ZOPICLONE
     Dosage: 7.5 MILLIGRAM, QD
     Route: 065
     Dates: start: 20220426, end: 20220426
  13. AMISULPRIDE [Suspect]
     Active Substance: AMISULPRIDE
     Indication: Product used for unknown indication
     Dosage: 50 MILLIGRAM, QD
     Route: 065
  14. ARIPIPRAZOLE [Interacting]
     Active Substance: ARIPIPRAZOLE
     Indication: Impulsive behaviour
     Dosage: 10 MILLIGRAM, QD
     Route: 065
     Dates: start: 20220612, end: 20220612
  15. ARIPIPRAZOLE [Interacting]
     Active Substance: ARIPIPRAZOLE
     Indication: Personality disorder
     Dosage: 5 MILLIGRAM, QD
     Route: 065
     Dates: start: 20220610, end: 20220611
  16. ARIPIPRAZOLE [Interacting]
     Active Substance: ARIPIPRAZOLE
     Indication: Major depression
     Dosage: 15 MILLIGRAM, QD
     Route: 065
     Dates: start: 20220613, end: 20220613
  17. ARIPIPRAZOLE [Interacting]
     Active Substance: ARIPIPRAZOLE
     Dosage: 30 MILLIGRAM, QD
     Route: 065
     Dates: start: 20220701, end: 20220701
  18. ARIPIPRAZOLE [Interacting]
     Active Substance: ARIPIPRAZOLE
     Dosage: 30 MILLIGRAM, QD
     Route: 065
     Dates: start: 20220705, end: 20220705
  19. ARIPIPRAZOLE [Interacting]
     Active Substance: ARIPIPRAZOLE
     Dosage: 30 MILLIGRAM, QD
     Route: 065
     Dates: start: 20220622, end: 20220623
  20. ARIPIPRAZOLE [Interacting]
     Active Substance: ARIPIPRAZOLE
     Dosage: 30 MILLIGRAM, QD
     Route: 065
     Dates: start: 20220624, end: 20220626
  21. DIAZEPAM [Suspect]
     Active Substance: DIAZEPAM
     Indication: Sedation
     Dosage: 30 MILLIGRAM, QD
     Route: 065
     Dates: start: 20220422, end: 20220423
  22. DIAZEPAM [Suspect]
     Active Substance: DIAZEPAM
     Indication: Major depression
     Dosage: 30 MILLIGRAM, QD
     Route: 065
     Dates: start: 20220608, end: 20220608
  23. DIAZEPAM [Suspect]
     Active Substance: DIAZEPAM
     Dosage: 30 MILLIGRAM, QD
     Route: 065
     Dates: start: 20220705, end: 20220706
  24. DIAZEPAM [Suspect]
     Active Substance: DIAZEPAM
     Dosage: 30 MILLIGRAM, QD
     Route: 065
     Dates: start: 20220528, end: 20220528
  25. DIAZEPAM [Suspect]
     Active Substance: DIAZEPAM
     Dosage: 30 MILLIGRAM, QD
     Route: 065
     Dates: start: 20220426, end: 20220426
  26. DIAZEPAM [Suspect]
     Active Substance: DIAZEPAM
     Dosage: 30 MILLIGRAM, QD
     Route: 065
     Dates: start: 20220622, end: 20220626
  27. DIAZEPAM [Suspect]
     Active Substance: DIAZEPAM
     Dosage: 30 MILLIGRAM, QD
     Route: 065
     Dates: start: 20220727, end: 20220727
  28. DIAZEPAM [Suspect]
     Active Substance: DIAZEPAM
     Dosage: 30 MILLIGRAM, QD
     Route: 065
     Dates: start: 20220610, end: 20220613
  29. DIAZEPAM [Suspect]
     Active Substance: DIAZEPAM
     Dosage: 30 MILLIGRAM, QD
     Route: 065
     Dates: start: 20220701, end: 20220701
  30. DIAZEPAM [Suspect]
     Active Substance: DIAZEPAM
     Dosage: 30 MILLIGRAM, QD
     Route: 065
     Dates: start: 20220605, end: 20220605
  31. LAMOTRIGINE [Suspect]
     Active Substance: LAMOTRIGINE
     Indication: Personality disorder
     Dosage: 75 MILLIGRAM, QD
     Route: 065
     Dates: start: 20220705, end: 20220705
  32. LAMOTRIGINE [Suspect]
     Active Substance: LAMOTRIGINE
     Indication: Impulsive behaviour
     Dosage: 75 MILLIGRAM, QD
     Route: 065
     Dates: start: 20220701, end: 20220701
  33. LAMOTRIGINE [Suspect]
     Active Substance: LAMOTRIGINE
     Indication: Major depression
     Dosage: 50 MILLIGRAM, QD
     Route: 065
     Dates: start: 20220623, end: 20220626
  34. LAMOTRIGINE [Suspect]
     Active Substance: LAMOTRIGINE
     Dosage: 25 MILLIGRAM, QD
     Route: 065
     Dates: start: 20220608, end: 20220608
  35. LAMOTRIGINE [Suspect]
     Active Substance: LAMOTRIGINE
     Dosage: 25 MILLIGRAM, QD
     Route: 065
     Dates: start: 20220610, end: 20220613
  36. LAMOTRIGINE [Suspect]
     Active Substance: LAMOTRIGINE
     Dosage: 25 MILLIGRAM, QD
     Route: 065
     Dates: start: 20220622, end: 20220622
  37. QUETIAPINE [Suspect]
     Active Substance: QUETIAPINE
     Indication: Product used for unknown indication
     Dosage: 400 MILLIGRAM, QD
     Route: 065
  38. QUETIAPINE [Suspect]
     Active Substance: QUETIAPINE
     Dosage: 300 MILLIGRAM, QD
     Route: 065
  39. CYAMEMAZINE [Concomitant]
     Active Substance: CYAMEMAZINE
     Indication: Sedation
     Dosage: 150 MILLIGRAM, DAILY
     Route: 065
     Dates: start: 20220608, end: 20220608
  40. CYAMEMAZINE [Concomitant]
     Active Substance: CYAMEMAZINE
     Indication: Major depression
     Dosage: 150 MILLIGRAM, DAILY
     Route: 065
     Dates: start: 20220610
  41. CYAMEMAZINE [Concomitant]
     Active Substance: CYAMEMAZINE
     Dosage: 150 MILLIGRAM, DAILY
     Route: 065
     Dates: start: 20220422, end: 20220423
  42. CYAMEMAZINE [Concomitant]
     Active Substance: CYAMEMAZINE
     Dosage: 150 MILLIGRAM, DAILY
     Route: 065
     Dates: start: 20220426, end: 20220426
  43. CYAMEMAZINE [Concomitant]
     Active Substance: CYAMEMAZINE
     Dosage: 150 MILLIGRAM, DAILY
     Route: 065
     Dates: start: 20220605, end: 20220605
  44. CYAMEMAZINE [Concomitant]
     Active Substance: CYAMEMAZINE
     Dosage: 150 MILLIGRAM, DAILY
     Route: 065
     Dates: start: 20220528, end: 20220528
  45. ETONOGESTREL [Concomitant]
     Active Substance: ETONOGESTREL
     Indication: Contraceptive implant
     Dosage: UNK
     Route: 065
     Dates: start: 2021
  46. MIRTAZAPINE [Concomitant]
     Active Substance: MIRTAZAPINE
     Indication: Depressive symptom
     Dosage: 30 MILLIGRAM, QD
     Route: 065
     Dates: start: 20220623, end: 20220624
  47. MIRTAZAPINE [Concomitant]
     Active Substance: MIRTAZAPINE
     Indication: Insomnia
     Dosage: 15 MILLIGRAM, QD
     Route: 065
     Dates: start: 20220622, end: 20220622
  48. MIRTAZAPINE [Concomitant]
     Active Substance: MIRTAZAPINE
     Indication: Major depression
     Dosage: 15 MILLIGRAM, QD
     Route: 065
     Dates: start: 20220612, end: 20220613
  49. MIRTAZAPINE [Concomitant]
     Active Substance: MIRTAZAPINE
     Dosage: 7.5 MILLIGRAM, QD
     Route: 065
     Dates: start: 20220610, end: 20220611
  50. PAROXETINE [Concomitant]
     Active Substance: PAROXETINE
     Indication: Depressive symptom
     Dosage: 40 MILLIGRAM, QD
     Route: 065
     Dates: start: 20220605, end: 20220605
  51. PAROXETINE [Concomitant]
     Active Substance: PAROXETINE
     Indication: Major depression
     Dosage: 40 MILLIGRAM, QD
     Route: 065
     Dates: start: 20220608, end: 20220608
  52. PAROXETINE [Concomitant]
     Active Substance: PAROXETINE
     Dosage: 40 MILLIGRAM, QD
     Route: 065
     Dates: start: 20220610, end: 20220610
  53. PAROXETINE [Concomitant]
     Active Substance: PAROXETINE
     Dosage: 40 MILLIGRAM, QD
     Route: 065
     Dates: start: 20220426, end: 20220426
  54. PAROXETINE [Concomitant]
     Active Substance: PAROXETINE
     Dosage: 40 MILLIGRAM, QD
     Route: 065
     Dates: start: 20220528, end: 20220528
  55. PAROXETINE [Concomitant]
     Active Substance: PAROXETINE
     Dosage: 20 MILLIGRAM, QD
     Route: 065
     Dates: start: 20220423, end: 20220423
  56. PAROXETINE [Concomitant]
     Active Substance: PAROXETINE
     Dosage: 20 MILLIGRAM, QD
     Route: 065
     Dates: start: 20220611
  57. PAROXETINE [Concomitant]
     Active Substance: PAROXETINE
     Dosage: 10 MILLIGRAM, QD
     Route: 065

REACTIONS (11)
  - Depressive symptom [Recovered/Resolved]
  - Suicidal ideation [Recovered/Resolved]
  - Confusional state [Recovered/Resolved]
  - Hallucination, visual [Recovered/Resolved]
  - Delusion [Recovered/Resolved]
  - Dystonia [Unknown]
  - Drug interaction [Recovered/Resolved]
  - Drug-genetic interaction [Recovered/Resolved]
  - Delirium [Recovered/Resolved]
  - Drug ineffective [Unknown]
  - Weight increased [Unknown]

NARRATIVE: CASE EVENT DATE: 20220611
